FAERS Safety Report 10311028 (Version 2)
Quarter: 2014Q3

REPORT INFORMATION
  Report Type: Spontaneous
  Country: US (occurrence: US)
  Receive Date: 20140717
  Receipt Date: 20140910
  Transmission Date: 20150326
  Serious: Yes (Hospitalization)
  Sender: FDA-Public Use
  Company Number: US-BAYER-2014-104163

PATIENT
  Age: 20 Year
  Sex: Female
  Weight: 54.88 kg

DRUGS (7)
  1. CELEXA [Concomitant]
     Active Substance: CITALOPRAM HYDROBROMIDE
  2. MOTRIN [Concomitant]
     Active Substance: IBUPROFEN
     Indication: PAIN MANAGEMENT
  3. NORCO [Concomitant]
     Active Substance: ACETAMINOPHEN\HYDROCODONE BITARTRATE
     Indication: PAIN MANAGEMENT
  4. ALBUTEROL. [Concomitant]
     Active Substance: ALBUTEROL
  5. MIRENA [Suspect]
     Active Substance: LEVONORGESTREL
     Indication: CONTRACEPTION
     Dosage: 20 MCG/24HR, CONT
     Route: 015
     Dates: start: 20120214, end: 20140602
  6. CYTOTEC [Concomitant]
     Active Substance: MISOPROSTOL
  7. ZITHROMAX [Concomitant]
     Active Substance: AZITHROMYCIN DIHYDRATE

REACTIONS (10)
  - Device dislocation [None]
  - Injury [None]
  - Device difficult to use [None]
  - Device issue [None]
  - Off label use [None]
  - Uterine perforation [None]
  - Medical device discomfort [None]
  - Procedural pain [None]
  - General physical health deterioration [None]
  - Abdominal pain [None]

NARRATIVE: CASE EVENT DATE: 20140205
